FAERS Safety Report 6913147-2 (Version None)
Quarter: 2010Q3

REPORT INFORMATION
  Report Type: 
  Country: None (occurrence: None)
  Receive Date: 20100806
  Receipt Date: 20090823
  Transmission Date: 20110219
  Serious: No
  Sender: FDA-Public Use
  Company Number: US-PFIZER INC-2009223175

PATIENT
  Sex: Male
  Weight: 108.84 kg

DRUGS (1)
  1. VFEND [Suspect]
     Indication: FUNGAL OESOPHAGITIS
     Dosage: 200 MG, 2X/DAY
     Route: 048
     Dates: start: 20090529

REACTIONS (5)
  - DIZZINESS [None]
  - HYPERHIDROSIS [None]
  - NAUSEA [None]
  - RASH [None]
  - SKIN EXFOLIATION [None]
